FAERS Safety Report 9552760 (Version 1)
Quarter: 2013Q3

REPORT INFORMATION
  Report Type: Spontaneous
  Country: US (occurrence: US)
  Receive Date: 20130925
  Receipt Date: 20130925
  Transmission Date: 20140515
  Serious: No
  Sender: FDA-Public Use
  Company Number: US-PURDUE-USA-2012-0096787

PATIENT
  Age: 88 Year
  Sex: Male

DRUGS (2)
  1. MS CONTIN TABLETS [Suspect]
     Indication: NEUROPATHY PERIPHERAL
     Dosage: 50 MG, TID
     Route: 048
     Dates: start: 20121205, end: 20121205
  2. OXYCONTIN (NDA 22-272) [Suspect]
     Indication: NEUROPATHY PERIPHERAL
     Dosage: 20 MG, DAILY
     Route: 048

REACTIONS (3)
  - Chills [Not Recovered/Not Resolved]
  - Hyperhidrosis [Not Recovered/Not Resolved]
  - Malaise [Unknown]
